FAERS Safety Report 9359278 (Version 1)
Quarter: 2013Q2

REPORT INFORMATION
  Report Type: Spontaneous
  Country: US (occurrence: US)
  Receive Date: 20130620
  Receipt Date: 20130620
  Transmission Date: 20140414
  Serious: No
  Sender: FDA-Public Use
  Company Number: US-TEVA-408262USA

PATIENT
  Age: 14 Year
  Sex: Male

DRUGS (1)
  1. QVAR [Suspect]
     Route: 055
     Dates: start: 2002, end: 2003

REACTIONS (2)
  - Insomnia [Unknown]
  - Insomnia [Unknown]
